FAERS Safety Report 11089521 (Version 2)
Quarter: 2015Q2

REPORT INFORMATION
  Report Type: Spontaneous
  Country: US (occurrence: US)
  Receive Date: 20150505
  Receipt Date: 20150622
  Transmission Date: 20150821
  Serious: Yes (Hospitalization)
  Sender: FDA-Public Use
  Company Number: US-BAYER-2015-179982

PATIENT
  Age: 24 Year
  Sex: Female
  Weight: 61 kg

DRUGS (3)
  1. LORAZEPAM. [Concomitant]
     Active Substance: LORAZEPAM
     Dosage: UNK
     Dates: start: 201301
  2. SERTRALINE [Concomitant]
     Active Substance: SERTRALINE HYDROCHLORIDE
     Dosage: UNK
     Dates: start: 201301
  3. MIRENA [Suspect]
     Active Substance: LEVONORGESTREL
     Indication: CONTRACEPTION
     Dosage: 20 MCG/24HR, CONT
     Route: 015
     Dates: start: 20130926, end: 20140602

REACTIONS (9)
  - Genital haemorrhage [None]
  - Abdominal discomfort [None]
  - Procedural pain [None]
  - Embedded device [None]
  - Emotional distress [None]
  - Abdominal pain [None]
  - Injury [None]
  - Post procedural discomfort [None]
  - Pelvic pain [None]

NARRATIVE: CASE EVENT DATE: 201406
